FAERS Safety Report 4428964-0 (Version None)
Quarter: 2004Q3

REPORT INFORMATION
  Report Type: 
  Country: None (occurrence: None)
  Receive Date: 20040818
  Receipt Date: 20040624
  Transmission Date: 20050211
  Serious: No
  Sender: FDA-Public Use
  Company Number: US-GLAXOSMITHKLINE-A0516544A

PATIENT
  Age: 73 Year
  Sex: Female

DRUGS (3)
  1. LOTRONEX [Suspect]
     Indication: IRRITABLE BOWEL SYNDROME
     Dosage: 1MG SINGLE DOSE
     Dates: start: 20001001, end: 20001001
  2. PREVACID [Concomitant]
  3. KONSYL [Concomitant]

REACTIONS (1)
  - CONSTIPATION [None]
